FAERS Safety Report 5751042-5 (Version None)
Quarter: 2008Q2

REPORT INFORMATION
  Report Type: 
  Country: None (occurrence: None)
  Receive Date: 20080528
  Receipt Date: 20080519
  Transmission Date: 20081010
  Serious: Yes (Other)
  Sender: FDA-Public Use
  Company Number: US-AVENTIS-200718376US

PATIENT
  Sex: Male
  Weight: 102 kg

DRUGS (5)
  1. KETEK [Suspect]
     Indication: ACUTE SINUSITIS
     Dosage: DOSE: UNK
     Dates: start: 20050901
  2. KETEK [Suspect]
     Dosage: DOSE: UNK
     Dates: start: 20051001
  3. TYLENOL [Suspect]
     Dosage: DOSE: UNK
  4. NASONEX [Concomitant]
     Dosage: DOSE: UNK
     Dates: start: 20050101
  5. BROMFENEX [Concomitant]
     Dosage: DOSE: UNK
     Dates: start: 20050101

REACTIONS (11)
  - ABDOMINAL PAIN [None]
  - CHILLS [None]
  - DECREASED APPETITE [None]
  - HEPATIC ENZYME INCREASED [None]
  - HEPATITIS ACUTE [None]
  - HYPERHIDROSIS [None]
  - MYALGIA [None]
  - NAUSEA [None]
  - PAIN [None]
  - PYREXIA [None]
  - VOMITING [None]
